FAERS Safety Report 7287364-9 (Version None)
Quarter: 2011Q1

REPORT INFORMATION
  Report Type: 
  Country: None (occurrence: None)
  Receive Date: 20110211
  Receipt Date: 20110203
  Transmission Date: 20110831
  Serious: Yes (Other)
  Sender: FDA-Public Use
  Company Number: FR-JNJFOC-20110202044

PATIENT
  Age: 74 Year
  Sex: Female

DRUGS (7)
  1. DURAGESIC-100 [Suspect]
     Indication: PAIN
     Route: 062
  2. DURAGESIC-100 [Suspect]
     Route: 062
  3. ANTI HYPERTENSIVE [Concomitant]
     Indication: HYPERTENSION
     Route: 065
  4. DURAGESIC-100 [Suspect]
     Route: 062
  5. LYSANXIA [Concomitant]
     Indication: ANXIETY
     Route: 065
  6. DURAGESIC-100 [Suspect]
     Route: 062
  7. CHEMOTHERAPY [Concomitant]
     Indication: NEOPLASM MALIGNANT
     Route: 065

REACTIONS (2)
  - PSYCHOMOTOR RETARDATION [None]
  - SOMNOLENCE [None]
